FAERS Safety Report 4531572-4 (Version None)
Quarter: 2004Q4

REPORT INFORMATION
  Report Type: 
  Country: None (occurrence: None)
  Receive Date: 20041216
  Receipt Date: 20041130
  Transmission Date: 20050328
  Serious: Yes (Other)
  Sender: FDA-Public Use
  Company Number: US_0412108765

PATIENT
  Age: 21 Year
  Sex: Female

DRUGS (3)
  1. DULOXETINE HYDROCHLORIDE [Suspect]
     Indication: MAJOR DEPRESSION
     Dosage: 30 MG DAY
     Dates: start: 20041116, end: 20041119
  2. LOSEC (OMEPRAZOLE SODIUM) [Concomitant]
  3. LORAZEPAM [Concomitant]

REACTIONS (3)
  - OROPHARYNGEAL SWELLING [None]
  - SINUS PAIN [None]
  - TOOTHACHE [None]
